FAERS Safety Report 6226715-0 (Version None)
Quarter: 2009Q2

REPORT INFORMATION
  Report Type: 
  Country: None (occurrence: None)
  Receive Date: 20090610
  Receipt Date: 20090602
  Transmission Date: 20091009
  Serious: Yes (Hospitalization, Other)
  Sender: FDA-Public Use
  Company Number: FR-WYE-G03333309

PATIENT
  Age: 60 Year
  Sex: Female

DRUGS (5)
  1. EFFEXOR XR [Suspect]
     Indication: DEPRESSION
     Dosage: 225 MG TOTAL DAILY
     Route: 048
     Dates: start: 20010101
  2. VOLTAREN [Suspect]
     Indication: OSTEOARTHRITIS
     Dosage: 150 MG TOTAL DAILY
     Route: 048
     Dates: start: 20090226, end: 20090317
  3. MIANSERIN (MIANSERIN) [Concomitant]
  4. ALPRAZOLAM [Concomitant]
  5. PANTOPRAZOLE SODIUM [Concomitant]

REACTIONS (5)
  - COLITIS ISCHAEMIC [None]
  - COLITIS ULCERATIVE [None]
  - GASTROINTESTINAL HYPERMOTILITY [None]
  - PYREXIA [None]
  - VOMITING [None]
